FAERS Safety Report 5071847-6 (Version None)
Quarter: 2006Q3

REPORT INFORMATION
  Report Type: 
  Country: None (occurrence: None)
  Receive Date: 20060801
  Receipt Date: 20060725
  Transmission Date: 20061208
  Serious: Yes (Congenital Anomaly)
  Sender: FDA-Public Use
  Company Number: S06-ESP-02878-01

PATIENT
  Sex: Female

DRUGS (3)
  1. CITALOPRAM HYDROBROMIDE [Suspect]
     Indication: DEPRESSION
     Dosage: 5 MG QD PO
     Route: 048
     Dates: start: 20030201, end: 20030401
  2. LORAZEPAM [Suspect]
     Indication: INSOMNIA
     Dates: start: 20030201, end: 20030301
  3. LORAZEPAM [Suspect]
     Indication: SLEEP DISORDER
     Dates: start: 20030201, end: 20030301

REACTIONS (2)
  - DRUG EXPOSURE DURING PREGNANCY [None]
  - HEART DISEASE CONGENITAL [None]
